FAERS Safety Report 16979228 (Version 1)
Quarter: 2019Q4

REPORT INFORMATION
  Report Type: Spontaneous
  Country: JP (occurrence: JP)
  Receive Date: 20191031
  Receipt Date: 20191031
  Transmission Date: 20200122
  Serious: Yes (Other)
  Sender: FDA-Public Use
  Company Number: JP-JNJFOC-20191039584

PATIENT
  Age: 39 Year
  Sex: Male
  Weight: 70.9 kg

DRUGS (1)
  1. XEPLION [Suspect]
     Active Substance: PALIPERIDONE PALMITATE
     Indication: SCHIZOPHRENIA
     Route: 030
     Dates: start: 20170627

REACTIONS (2)
  - Suicide attempt [Recovered/Resolved]
  - Pneumothorax traumatic [Recovering/Resolving]

NARRATIVE: CASE EVENT DATE: 20190719
